FAERS Safety Report 10042615 (Version 1)
Quarter: 2014Q1

REPORT INFORMATION
  Report Type: Report from Study
  Country: US (occurrence: US)
  Receive Date: 20140327
  Receipt Date: 20140327
  Transmission Date: 20141002
  Serious: Yes (Hospitalization)
  Sender: FDA-Public Use
  Company Number: PHEH2014US005940

PATIENT
  Sex: Male
  Weight: 41 kg

DRUGS (1)
  1. TOBI [Suspect]
     Dosage: 300 MG, BID (300MG/5ML TWICE A DAY)
     Route: 055
     Dates: start: 20140208

REACTIONS (1)
  - Bronchitis [Not Recovered/Not Resolved]
